FAERS Safety Report 12743782 (Version 2)
Quarter: 2016Q4

REPORT INFORMATION
  Report Type: Spontaneous
  Country: US (occurrence: US)
  Receive Date: 20160914
  Receipt Date: 20161212
  Transmission Date: 20170207
  Serious: Yes (Hospitalization, Other)
  Sender: FDA-Public Use
  Company Number: US-PFIZER INC-2016429340

PATIENT
  Age: 61 Year
  Sex: Male

DRUGS (12)
  1. FUROSEMIDE. [Concomitant]
     Active Substance: FUROSEMIDE
     Indication: HYPERTENSION
     Dosage: UNK
     Dates: start: 2002
  2. NEURONTIN [Concomitant]
     Active Substance: GABAPENTIN
     Indication: NERVOUS SYSTEM DISORDER
     Dosage: UNK
     Dates: start: 2002
  3. DEPO-TESTOSTERONE [Suspect]
     Active Substance: TESTOSTERONE CYPIONATE
     Indication: HORMONE REPLACEMENT THERAPY
     Dosage: UNK
     Dates: start: 20130822, end: 20140104
  4. SPIRONOLACTONE. [Concomitant]
     Active Substance: SPIRONOLACTONE
     Indication: HYPERTENSION
     Dosage: UNK
     Dates: start: 2002
  5. NITROSTAT [Concomitant]
     Active Substance: NITROGLYCERIN
     Indication: CHEST PAIN
     Dosage: UNK
     Dates: start: 2002
  6. LISINOPRIL. [Concomitant]
     Active Substance: LISINOPRIL
     Indication: HYPERTENSION
     Dosage: UNK
     Dates: start: 2002
  7. METFORMIN [Concomitant]
     Active Substance: METFORMIN HYDROCHLORIDE
     Indication: DIABETES MELLITUS
     Dosage: UNK
     Dates: start: 2005, end: 2015
  8. EPITOL [Concomitant]
     Active Substance: CARBAMAZEPINE
     Indication: NERVOUS SYSTEM DISORDER
     Dosage: UNK
     Dates: start: 2002
  9. DEPO-TESTOSTERONE [Suspect]
     Active Substance: TESTOSTERONE CYPIONATE
     Dosage: UNK, SHOTS TWICE PER MONTH
     Dates: start: 201308, end: 201310
  10. METOPROLOL. [Concomitant]
     Active Substance: METOPROLOL
     Indication: HYPERTENSION
     Dosage: UNK
     Dates: start: 2002
  11. ASPIRIN. [Concomitant]
     Active Substance: ASPIRIN
     Indication: MYOCARDIAL INFARCTION
     Dosage: UNK
     Dates: start: 2002
  12. PRAVASTATIN. [Concomitant]
     Active Substance: PRAVASTATIN
     Indication: BLOOD CHOLESTEROL INCREASED
     Dosage: UNK
     Dates: start: 2002, end: 2015

REACTIONS (5)
  - Cerebrovascular accident [Unknown]
  - Cardiac failure congestive [Not Recovered/Not Resolved]
  - Myocardial infarction [Unknown]
  - Cardiovascular disorder [Not Recovered/Not Resolved]
  - Ischaemia [Not Recovered/Not Resolved]

NARRATIVE: CASE EVENT DATE: 20130917
